FAERS Safety Report 7531063-2 (Version None)
Quarter: 2011Q2

REPORT INFORMATION
  Report Type: 
  Country: None (occurrence: None)
  Receive Date: 20110608
  Receipt Date: 20110603
  Transmission Date: 20111010
  Serious: Yes (Other)
  Sender: FDA-Public Use
  Company Number: US-AMGEN-USASP2011027352

PATIENT
  Age: 58 Year
  Sex: Male
  Weight: 105.22 kg

DRUGS (7)
  1. CLONIDINE [Concomitant]
     Dosage: 0.1 MG, QD
     Route: 048
     Dates: start: 20070701
  2. NPLATE [Suspect]
     Dates: start: 20101103
  3. ACCUPRIL [Concomitant]
     Dosage: 40 MG, QD
     Route: 048
     Dates: start: 20070613
  4. METOPROLOL SUCCINATE [Concomitant]
     Dosage: 50 MG, QD
     Route: 048
     Dates: start: 20080213
  5. ZOCOR [Concomitant]
     Dosage: 40 MG, QD
     Route: 048
     Dates: start: 20101001
  6. NPLATE [Suspect]
     Indication: IDIOPATHIC THROMBOCYTOPENIC PURPURA
     Dosage: 10 A?G/KG, QWK
     Route: 058
     Dates: start: 20101110
  7. LASIX [Concomitant]
     Dosage: 20 MG, QD
     Route: 048
     Dates: start: 20071031

REACTIONS (1)
  - THERAPEUTIC RESPONSE DECREASED [None]
